FAERS Safety Report 8425237-6 (Version None)
Quarter: 2012Q2

REPORT INFORMATION
  Report Type: 
  Country: None (occurrence: None)
  Receive Date: 20120611
  Receipt Date: 20120531
  Transmission Date: 20120825
  Serious: Yes (Other)
  Sender: FDA-Public Use
  Company Number: SE-JNJFOC-20120602654

PATIENT
  Age: 38 Year
  Sex: Female

DRUGS (5)
  1. CONCERTA [Suspect]
     Dosage: 2-3 TABLETS IN THE MORNING
     Route: 048
  2. CONCERTA [Suspect]
     Dosage: IN THE MORNING
     Route: 048
  3. CONCERTA [Suspect]
     Indication: ATTENTION DEFICIT/HYPERACTIVITY DISORDER
     Dosage: AFTER LUNCH
     Route: 048
  4. CONCERTA [Suspect]
     Dosage: 2 TABLETS IN THE MORNING AND 2 TABLETS AT LUNCH
     Route: 048
  5. RITALIN [Suspect]
     Indication: ATTENTION DEFICIT/HYPERACTIVITY DISORDER
     Dosage: 2 TABLETS IN THE MORNING AND 3 TABLETS AT NIGHT
     Route: 065

REACTIONS (26)
  - DRUG INEFFECTIVE [None]
  - FATIGUE [None]
  - EXPIRED DRUG ADMINISTERED [None]
  - PALPITATIONS [None]
  - AGGRESSION [None]
  - DIZZINESS [None]
  - TREMOR [None]
  - HYPERACUSIS [None]
  - DECREASED APPETITE [None]
  - PRURITUS [None]
  - OVERDOSE [None]
  - BLOOD GLUCOSE DECREASED [None]
  - MENSTRUAL DISORDER [None]
  - DARK CIRCLES UNDER EYES [None]
  - PYREXIA [None]
  - BALANCE DISORDER [None]
  - SKIN DISORDER [None]
  - ORAL HERPES [None]
  - NAUSEA [None]
  - ANXIETY [None]
  - SKIN WARM [None]
  - DISTURBANCE IN ATTENTION [None]
  - ABDOMINAL PAIN UPPER [None]
  - HEADACHE [None]
  - DRY MOUTH [None]
  - MEMORY IMPAIRMENT [None]
